FAERS Safety Report 22171512 (Version 1)
Quarter: 2023Q2

REPORT INFORMATION
  Report Type: Report from Study
  Country: TW (occurrence: None)
  Receive Date: 20230404
  Receipt Date: 20230404
  Transmission Date: 20230722
  Serious: Yes (Hospitalization)
  Sender: FDA-Public Use
  Company Number: TW-ROCHE-3322375

PATIENT
  Age: 58 Year
  Sex: Male

DRUGS (10)
  1. ATEZOLIZUMAB [Suspect]
     Active Substance: ATEZOLIZUMAB
     Indication: Hepatocellular carcinoma
     Route: 042
     Dates: start: 20230223, end: 20230223
  2. BEVACIZUMAB [Suspect]
     Active Substance: BEVACIZUMAB
     Indication: Hepatocellular carcinoma
     Route: 042
     Dates: start: 20230119, end: 20230119
  3. ENTECAVIR [Concomitant]
     Active Substance: ENTECAVIR
     Dosage: 0.5MG/TAB, 1TAB
     Route: 048
     Dates: start: 20220513
  4. MEGESTROL ACETATE [Concomitant]
     Active Substance: MEGESTROL ACETATE
     Dosage: 40MG/ML, 10ML
     Route: 048
     Dates: start: 20220207
  5. ZOLPIDEM [Concomitant]
     Active Substance: ZOLPIDEM TARTRATE
     Dosage: 10MG/TAB
     Dates: start: 20230202
  6. EXFORGE [Concomitant]
     Active Substance: AMLODIPINE BESYLATE\VALSARTAN
     Dosage: 1TAB
     Route: 048
     Dates: start: 20220630
  7. FUROSEMIDE [Concomitant]
     Active Substance: FUROSEMIDE
     Dosage: 40MG/TAB, 1TAB
     Route: 048
     Dates: start: 20230202
  8. SENNOSIDES [Concomitant]
     Active Substance: SENNOSIDES
     Dosage: 20MG/TAB, 2TAB
     Route: 048
     Dates: start: 20230216
  9. SPIRONOLACTONE [Concomitant]
     Active Substance: SPIRONOLACTONE
     Dosage: 25MG/TAB, 2TAB
     Route: 048
     Dates: start: 20230214
  10. URSODIOL [Concomitant]
     Active Substance: URSODIOL
     Dosage: 100MG/TAB, 2TAB
     Route: 048
     Dates: start: 20230213

REACTIONS (1)
  - Anal fistula [Recovered/Resolved]

NARRATIVE: CASE EVENT DATE: 20230315
